FAERS Safety Report 8814304 (Version 1)
Quarter: 2012Q4

REPORT INFORMATION
  Report Type: 
  Country: US (occurrence: US)
  Receive Date: 20120928
  Receipt Date: 20120928
  Transmission Date: 20130627
  Serious: No
  Sender: FDA-Public Use
  Company Number: US-BAYER-2012-089975

PATIENT
  Age: 86 Year
  Sex: Female

DRUGS (1)
  1. CIPRO [Suspect]
     Indication: CYSTITIS
     Dosage: UNK, BID
     Route: 048
     Dates: start: 20120824

REACTIONS (1)
  - Fatigue [None]
